FAERS Safety Report 25178730 (Version 1)
Quarter: 2025Q2

REPORT INFORMATION
  Report Type: Report from Study
  Country: GB (occurrence: GB)
  Receive Date: 20250409
  Receipt Date: 20250409
  Transmission Date: 20250716
  Serious: Yes (Hospitalization)
  Sender: ALIMERA
  Company Number: GB-ALIMERA SCIENCES LIMITED-GB-IL-2016-002851

PATIENT
  Age: 65 Year
  Sex: Male

DRUGS (16)
  1. ILUVIEN [Suspect]
     Active Substance: FLUOCINOLONE ACETONIDE
     Indication: Diabetic retinal oedema
     Dosage: 0.25 ?G, QD, RIGHT EYE
     Route: 031
     Dates: start: 20150814
  2. LOSARTAN [Concomitant]
     Active Substance: LOSARTAN
     Indication: Hypertension
  3. METFORMIN [Concomitant]
     Active Substance: METFORMIN HYDROCHLORIDE
     Indication: Type 2 diabetes mellitus
  4. Novomix insulin pen [Concomitant]
     Indication: Type 2 diabetes mellitus
  5. ATORVASTATIN [Concomitant]
     Active Substance: ATORVASTATIN
     Indication: Hypercholesterolaemia
  6. BENDROFLUMETHIAZIDE [Concomitant]
     Active Substance: BENDROFLUMETHIAZIDE
     Indication: Hypertension
  7. LANSOPRAZOLE [Concomitant]
     Active Substance: LANSOPRAZOLE
     Indication: Gastrooesophageal reflux disease
  8. ALPHAGAN P [Concomitant]
     Active Substance: BRIMONIDINE TARTRATE
     Indication: Intraocular pressure increased
     Dates: start: 20160323
  9. TIMOLOL MALEATE\TRAVOPROST [Concomitant]
     Active Substance: TIMOLOL MALEATE\TRAVOPROST
     Indication: Intraocular pressure increased
     Dates: start: 20160323
  10. G Afort [Concomitant]
     Indication: Intraocular pressure increased
     Dates: start: 20160407
  11. BIMATOPROST\TIMOLOL [Concomitant]
     Active Substance: BIMATOPROST\TIMOLOL
     Indication: Intraocular pressure increased
     Dates: start: 20151010
  12. DIAMOX SEQUELS [Concomitant]
     Active Substance: ACETAZOLAMIDE
     Indication: Intraocular pressure increased
     Dates: start: 20160524
  13. ACETAZOLAMIDE [Concomitant]
     Active Substance: ACETAZOLAMIDE
     Indication: Intraocular pressure increased
     Dates: start: 20160621
  14. Lucentin [Concomitant]
     Indication: Product used for unknown indication
  15. AZOPT [Concomitant]
     Active Substance: BRINZOLAMIDE
     Indication: Intraocular pressure increased
  16. DIONEX [Concomitant]
     Indication: Intraocular pressure increased
     Dates: start: 20160505, end: 20160524

REACTIONS (2)
  - Medical device implantation [Recovered/Resolved]
  - Intraocular pressure increased [Recovered/Resolved]

NARRATIVE: CASE EVENT DATE: 20160627
